FAERS Safety Report 4399096-5 (Version None)
Quarter: 2004Q2

REPORT INFORMATION
  Report Type: 
  Country: None (occurrence: None)
  Receive Date: 20040621
  Receipt Date: 20040126
  Transmission Date: 20050107
  Serious: Yes (Death, Hospitalization, Other)
  Sender: FDA-Public Use
  Company Number: 2014261

PATIENT
  Age: 30 Year
  Sex: Male
  Weight: 102 kg

DRUGS (3)
  1. OXYCONTIN [Suspect]
     Dosage: 160 MG, DAILY, ORAL
     Route: 048
  2. MARIJUANA (CANNABIS) [Suspect]
  3. ZESTRIL [Concomitant]

REACTIONS (8)
  - ACCIDENTAL OVERDOSE [None]
  - CHILLS [None]
  - DIARRHOEA [None]
  - DRUG ABUSER [None]
  - DRUG DEPENDENCE [None]
  - DRUG WITHDRAWAL SYNDROME [None]
  - PRURITUS [None]
  - VOMITING [None]
